FAERS Safety Report 12743835 (Version 1)
Quarter: 2016Q3

REPORT INFORMATION
  Report Type: Spontaneous
  Country: US (occurrence: US)
  Receive Date: 20160914
  Receipt Date: 20160914
  Transmission Date: 20161109
  Serious: Yes (Other)
  Sender: FDA-Public Use
  Company Number: US-PFIZER INC-2016415312

PATIENT
  Age: 72 Year
  Sex: Female
  Weight: 85 kg

DRUGS (1)
  1. IBRANCE [Suspect]
     Active Substance: PALBOCICLIB
     Indication: BREAST CANCER METASTATIC
     Dosage: 100 MG, CYCLIC (DAYS 1-21 EVERY 28DAYS)
     Route: 048
     Dates: start: 20160609

REACTIONS (2)
  - Urinary retention [Unknown]
  - Urinary tract infection [Unknown]
